FAERS Safety Report 5322983-8 (Version None)
Quarter: 2007Q2

REPORT INFORMATION
  Report Type: 
  Country: None (occurrence: None)
  Receive Date: 20070215
  Receipt Date: 20061205
  Transmission Date: 20071010
  Serious: Yes (Hospitalization, Other)
  Sender: FDA-Public Use
  Company Number: 200616580BWH

PATIENT
  Age: 52 Year
  Sex: Male
  Weight: 145.151 kg

DRUGS (13)
  1. NEXAVAR [Suspect]
     Indication: HEPATIC NEOPLASM MALIGNANT
     Dosage: SEE IMAGE
     Route: 048
     Dates: start: 20061031, end: 20061107
  2. NEXAVAR [Suspect]
     Indication: HEPATIC NEOPLASM MALIGNANT
     Dosage: SEE IMAGE
     Route: 048
     Dates: start: 20061127, end: 20061201
  3. ESOMEPRAZOLE MAGNESIUM [Concomitant]
  4. FUROSEMIDE [Concomitant]
  5. LEVOTHYROXINE SODIUM [Concomitant]
  6. METRONIDDAZOLE [Concomitant]
  7. OXYBUTYNIN CHLORIDE [Concomitant]
  8. OXYCODONE HCL [Concomitant]
  9. POTASSIUM ACETATE [Concomitant]
  10. PROPOXYPHENE HYDROCHLORIDE [Concomitant]
  11. SILYBIN PHYTOSOME [Concomitant]
  12. SPIRONOLACTONE [Concomitant]
  13. TEMAZEPAM [Concomitant]

REACTIONS (5)
  - FLATULENCE [None]
  - NAUSEA [None]
  - PANCREATITIS [None]
  - PENILE HAEMORRHAGE [None]
  - URINARY TRACT INFECTION [None]
